FAERS Safety Report 25525168 (Version 3)
Quarter: 2025Q3

REPORT INFORMATION
  Report Type: Spontaneous
  Country: US (occurrence: US)
  Receive Date: 20250707
  Receipt Date: 20250915
  Transmission Date: 20251020
  Serious: No
  Sender: SANOFI AVENTIS
  Company Number: US-SA-2025SA190266

PATIENT
  Age: 67 Year
  Sex: Female

DRUGS (2)
  1. DUPIXENT [Suspect]
     Active Substance: DUPILUMAB
     Indication: Asthma
     Dosage: 300 MG, QOW
     Route: 058
     Dates: start: 20250520
  2. DUPIXENT [Suspect]
     Active Substance: DUPILUMAB
     Indication: Eczema

REACTIONS (13)
  - Dyspnoea [Unknown]
  - Injection site irritation [Unknown]
  - Injection site warmth [Unknown]
  - Injection site rash [Unknown]
  - Injection site erythema [Recovering/Resolving]
  - Confusional state [Unknown]
  - Depression [Unknown]
  - Nasal congestion [Unknown]
  - Condition aggravated [Unknown]
  - Eye pruritus [Recovered/Resolved]
  - Product dose omission in error [Unknown]
  - Incorrect dose administered [Unknown]
  - Intentional product misuse [Unknown]

NARRATIVE: CASE EVENT DATE: 20250101
